FAERS Safety Report 20013439 (Version 1)
Quarter: 2021Q4

REPORT INFORMATION
  Report Type: Spontaneous
  Country: NO (occurrence: NO)
  Receive Date: 20211029
  Receipt Date: 20211029
  Transmission Date: 20220304
  Serious: Yes (Other)
  Sender: FDA-Public Use
  Company Number: NO-BAYER-2021A238813

PATIENT

DRUGS (1)
  1. XOFIGO [Suspect]
     Active Substance: RADIUM RA-223 DICHLORIDE

REACTIONS (5)
  - Metastases to liver [None]
  - Malaise [None]
  - General physical health deterioration [None]
  - Anaemia [None]
  - Drug ineffective [None]

NARRATIVE: CASE EVENT DATE: 20211022
